FAERS Safety Report 5153919-0 (Version None)
Quarter: 2006Q4

REPORT INFORMATION
  Report Type: 
  Country: None (occurrence: None)
  Receive Date: 20061120
  Receipt Date: 20061005
  Transmission Date: 20070319
  Serious: Yes (Other)
  Sender: FDA-Public Use
  Company Number: PHEH2006US12697

PATIENT

DRUGS (3)
  1. THALIDOMIDE [Concomitant]
     Indication: MULTIPLE MYELOMA
     Dosage: 200 MG, QD
     Dates: start: 20060703
  2. DEXAMETHASONE TAB [Concomitant]
     Dosage: 40 MG DAYS 1-4, 9-12, AND 17-21
     Route: 048
     Dates: start: 20060703
  3. ZOMETA [Suspect]
     Indication: MULTIPLE MYELOMA
     Dosage: 4 MG EVERY MONTH
     Dates: start: 20030601, end: 20060701

REACTIONS (2)
  - ABSCESS DRAINAGE [None]
  - OSTEONECROSIS [None]
